FAERS Safety Report 25572094 (Version 1)
Quarter: 2025Q3

REPORT INFORMATION
  Report Type: Spontaneous
  Country: EU (occurrence: EU)
  Receive Date: 20250717
  Receipt Date: 20250717
  Transmission Date: 20251020
  Serious: Yes (Hospitalization)
  Sender: TEVA
  Company Number: None

PATIENT
  Age: 54 Year
  Sex: Male

DRUGS (10)
  1. VENLAFAXINE [Suspect]
     Active Substance: VENLAFAXINE HYDROCHLORIDE
     Indication: Depression
     Route: 048
     Dates: end: 20250606
  2. VENLAFAXINE [Suspect]
     Active Substance: VENLAFAXINE HYDROCHLORIDE
     Indication: Depression
     Route: 048
     Dates: start: 20250607
  3. NIACINAMIDE [Concomitant]
     Active Substance: NIACINAMIDE
     Indication: Tobacco withdrawal symptoms
     Dosage: 500MG MORNING AND EVENING
     Route: 048
     Dates: start: 20250606
  4. DIAZEPAM [Concomitant]
     Active Substance: DIAZEPAM
     Indication: Prophylaxis against alcoholic withdrawal syndrome
     Dosage: 10MG EVERY 4 HOURS IF NEEDED
     Route: 048
     Dates: start: 20250606
  5. MELATONIN [Concomitant]
     Active Substance: MELATONIN
     Indication: Sleep disorder therapy
     Route: 048
     Dates: start: 20250606
  6. GABAPENTIN [Suspect]
     Active Substance: GABAPENTIN
     Indication: Neuralgia
     Dosage: 100MG 3 TIMES A DAY
     Route: 048
     Dates: start: 20250607, end: 20250610
  7. OXYCODONE HYDROCHLORIDE [Concomitant]
     Active Substance: OXYCODONE HYDROCHLORIDE
     Indication: Lumbar spinal stenosis
     Dosage: 5MG EVERY 6 HOURS IF NEEDED
     Route: 048
  8. ACAMPROSATE [Concomitant]
     Active Substance: ACAMPROSATE
     Indication: Alcohol use disorder
     Dosage: 2 TABLETS OF 333 MG 3 TIMES A DAY; ACAMPROSATE CALCIUM
     Route: 048
     Dates: start: 20250606
  9. CYANOCOBALAMIN\PYRIDOXINE HYDROCHLORIDE\THIAMINE [Concomitant]
     Active Substance: CYANOCOBALAMIN\PYRIDOXINE HYDROCHLORIDE\THIAMINE
     Indication: Prophylaxis against alcoholic withdrawal syndrome
     Dosage: 1 TABLET MORNING AND EVENING
     Route: 048
     Dates: start: 20250606
  10. OXYCONTIN [Concomitant]
     Active Substance: OXYCODONE HYDROCHLORIDE
     Indication: Lumbar spinal stenosis
     Dosage: 20MG LP MORNING AND EVENING, 20 MG, PROLONGED-RELEASE FILM-COATED TABLET
     Route: 048

REACTIONS (1)
  - Hepatic cytolysis [Recovering/Resolving]

NARRATIVE: CASE EVENT DATE: 20250610
